FAERS Safety Report 7065369-0 (Version None)
Quarter: 2010Q4

REPORT INFORMATION
  Report Type: 
  Country: None (occurrence: None)
  Receive Date: 20101027
  Receipt Date: 20101022
  Transmission Date: 20110411
  Serious: Yes (Other)
  Sender: FDA-Public Use
  Company Number: BR-ROCHE-730600

PATIENT
  Sex: Female
  Weight: 80 kg

DRUGS (5)
  1. RIVOTRIL [Suspect]
     Indication: NERVOUSNESS
     Route: 048
  2. RIVOTRIL [Suspect]
     Dosage: OTHER INDICATION: ANXIETY DISORDER
     Route: 048
     Dates: start: 20100920
  3. LEVOZINE [Concomitant]
     Indication: INSOMNIA
     Dosage: OTHER INDICATION: ANXIETY DISORDER
     Route: 048
  4. HALDOL [Concomitant]
     Indication: INSOMNIA
     Route: 048
  5. PROZEN [Concomitant]
     Indication: ANXIETY DISORDER
     Route: 048

REACTIONS (8)
  - DIZZINESS [None]
  - DRUG INEFFECTIVE [None]
  - HEADACHE [None]
  - INFARCTION [None]
  - INSOMNIA [None]
  - NAUSEA [None]
  - PRURITUS [None]
  - TREMOR [None]
